FAERS Safety Report 16357498 (Version 1)
Quarter: 2019Q2

REPORT INFORMATION
  Report Type: Spontaneous
  Country: US (occurrence: US)
  Receive Date: 20190418
  Receipt Date: 20190418
  Transmission Date: 20190711
  Serious: Yes (Life-Threatening, Hospitalization)
  Sender: FDA-Public Use
  Company Number: None

PATIENT
  Age: 46 Year
  Sex: Male
  Weight: 138.35 kg

DRUGS (8)
  1. VITAMIN B12 [Concomitant]
     Active Substance: CYANOCOBALAMIN
  2. ASPIRIN LOW DOSE [Concomitant]
     Active Substance: ASPIRIN
  3. XELJANZ [Concomitant]
     Active Substance: TOFACITINIB CITRATE
  4. SPIRONOLACTONE. [Concomitant]
     Active Substance: SPIRONOLACTONE
  5. ROCEPHIN [Suspect]
     Active Substance: CEFTRIAXONE SODIUM
     Indication: INJECTION
     Dosage: ?          QUANTITY:1 G GRAM(S);?
     Dates: start: 20181222, end: 20181222
  6. IBUPROFEN. [Concomitant]
     Active Substance: IBUPROFEN
  7. LOSARTAN. [Concomitant]
     Active Substance: LOSARTAN
  8. CENTRUM MULTIVITAMIN [Concomitant]

REACTIONS (4)
  - Generalised erythema [None]
  - Generalised oedema [None]
  - Post procedural complication [None]
  - Dyspnoea [None]
